FAERS Safety Report 20538257 (Version 1)
Quarter: 2022Q1

REPORT INFORMATION
  Report Type: Spontaneous
  Country: US (occurrence: US)
  Receive Date: 20220302
  Receipt Date: 20220302
  Transmission Date: 20220423
  Serious: Yes (Other)
  Sender: FDA-Public Use
  Company Number: US-JNJFOC-20210922193

PATIENT
  Age: 73 Year
  Sex: Male

DRUGS (2)
  1. DARZALEX [Suspect]
     Active Substance: DARATUMUMAB
     Indication: Plasma cell myeloma
     Route: 042
     Dates: start: 202105
  2. DARZALEX [Suspect]
     Active Substance: DARATUMUMAB
     Dosage: STRENGTH: 100.00 MG / 5.00 ML
     Route: 065
     Dates: start: 202105

REACTIONS (5)
  - Oxygen saturation decreased [Unknown]
  - Hypotension [Recovering/Resolving]
  - Pyrexia [Unknown]
  - Productive cough [Unknown]
  - Product label issue [Unknown]

NARRATIVE: CASE EVENT DATE: 20210901
